FAERS Safety Report 8289607-1 (Version None)
Quarter: 2012Q2

REPORT INFORMATION
  Report Type: 
  Country: None (occurrence: None)
  Receive Date: 20120417
  Receipt Date: 20120412
  Transmission Date: 20120825
  Serious: Yes (Death)
  Sender: FDA-Public Use
  Company Number: JP-ASTRAZENECA-2012SE21373

PATIENT
  Age: 70 Year
  Sex: Male

DRUGS (3)
  1. OMEPRAZOLE [Suspect]
     Route: 048
     Dates: start: 20110301, end: 20110301
  2. GASMOTIN [Concomitant]
     Dates: start: 20110301, end: 20110301
  3. ANOTHER DRUG [Concomitant]
     Dates: start: 20110301, end: 20110301

REACTIONS (2)
  - LIVER DISORDER [None]
  - GASTROINTESTINAL HAEMORRHAGE [None]
